FAERS Safety Report 11545167 (Version 2)
Quarter: 2015Q4

REPORT INFORMATION
  Report Type: Spontaneous
  Country: BR (occurrence: BR)
  Receive Date: 20150924
  Receipt Date: 20151117
  Transmission Date: 20160304
  Serious: Yes (Death, Hospitalization)
  Sender: FDA-Public Use
  Company Number: BR-PFIZER INC-2015046560

PATIENT
  Age: 72 Year
  Sex: Male

DRUGS (1)
  1. SUTENT [Suspect]
     Active Substance: SUNITINIB MALATE
     Indication: METASTATIC RENAL CELL CARCINOMA
     Dosage: 37.5 MG, CYCLIC (CYCLE 4 PER 2)
     Route: 048
     Dates: start: 20130507, end: 20150813

REACTIONS (6)
  - Cough [Not Recovered/Not Resolved]
  - Pneumonia [Fatal]
  - Skin discolouration [Not Recovered/Not Resolved]
  - Haemoptysis [Not Recovered/Not Resolved]
  - Multi-organ failure [Fatal]
  - Fatigue [Not Recovered/Not Resolved]
